FAERS Safety Report 7025393-0 (Version None)
Quarter: 2010Q4

REPORT INFORMATION
  Report Type: 
  Country: None (occurrence: None)
  Receive Date: 20101001
  Receipt Date: 20100922
  Transmission Date: 20110411
  Serious: Yes (Life-Threatening, Hospitalization, Other)
  Sender: FDA-Public Use
  Company Number: PHHY2010BR44340

PATIENT
  Sex: Male
  Weight: 94 kg

DRUGS (5)
  1. MYFORTIC [Suspect]
     Indication: RENAL TRANSPLANT
     Dosage: 360 MG, BID
     Route: 048
     Dates: start: 20100620
  2. SANDIMMUNE [Concomitant]
     Indication: RENAL TRANSPLANT
     Dosage: 25MG AND 50MG 1 TABLET BID
     Route: 048
  3. METICORTEN [Concomitant]
     Indication: RENAL TRANSPLANT
     Dosage: 10 MG, QD
     Route: 048
  4. FUROSEMIDE [Concomitant]
     Indication: RENAL TRANSPLANT
     Dosage: 160 MG, QD
     Route: 048
  5. ALOPURINOL [Concomitant]
     Indication: RENAL TRANSPLANT
     Dosage: 300 MG, QD
     Route: 048

REACTIONS (12)
  - ABDOMINAL PAIN UPPER [None]
  - DIARRHOEA [None]
  - DYSGRAPHIA [None]
  - DYSSTASIA [None]
  - FEELING ABNORMAL [None]
  - HYPOAESTHESIA [None]
  - LIMB INJURY [None]
  - MALAISE [None]
  - MONOPLEGIA [None]
  - NO THERAPEUTIC RESPONSE [None]
  - TREMOR [None]
  - WOUND INFECTION [None]
